FAERS Safety Report 16182047 (Version 2)
Quarter: 2019Q2

REPORT INFORMATION
  Report Type: Report from Study
  Country: US (occurrence: US)
  Receive Date: 20190410
  Receipt Date: 20190508
  Transmission Date: 20190711
  Serious: No
  Sender: FDA-Public Use
  Company Number: US-GILEAD-2019-0401353

PATIENT
  Sex: Female
  Weight: 3.46 kg

DRUGS (3)
  1. DOLUTEGRAVIR [Suspect]
     Active Substance: DOLUTEGRAVIR
     Indication: HIV INFECTION
     Dosage: 50 MG, QD, 2ND TRIMESTER
     Route: 048
     Dates: start: 20180223, end: 20180530
  2. RALTEGRAVIR. [Suspect]
     Active Substance: RALTEGRAVIR
     Indication: HIV INFECTION
     Dosage: 800 MG, QD, 2ND TRIMESTER
     Route: 048
     Dates: start: 20180530
  3. EMTRICITABINE/TENOFOVIR ALAFENAMIDE [Suspect]
     Active Substance: EMTRICITABINE\TENOFOVIR
     Indication: HIV INFECTION
     Dosage: 1 DOSAGE FORM, 2ND TRIMESTER
     Route: 048
     Dates: start: 20180223

REACTIONS (1)
  - Foetal exposure during pregnancy [Unknown]
